FAERS Safety Report 9164518 (Version 1)
Quarter: 2013Q1

REPORT INFORMATION
  Report Type: Report from Study
  Country: US (occurrence: US)
  Receive Date: 20130315
  Receipt Date: 20130315
  Transmission Date: 20140127
  Serious: Yes (Other)
  Sender: FDA-Public Use
  Company Number: US-JNJFOC-20130301497

PATIENT
  Age: 70 Year
  Sex: Male
  Weight: 62.6 kg

DRUGS (4)
  1. REMICADE [Suspect]
     Indication: CROHN^S DISEASE
     Route: 042
     Dates: start: 2010
  2. IMURAN [Concomitant]
     Route: 048
  3. UNKNOWN MEDICATION [Concomitant]
     Route: 065
  4. VITAMIN [Concomitant]
     Route: 065

REACTIONS (3)
  - Visual field defect [Not Recovered/Not Resolved]
  - Intraocular pressure increased [Recovering/Resolving]
  - Nausea [Not Recovered/Not Resolved]
